FAERS Safety Report 10267707 (Version 1)
Quarter: 2014Q2

REPORT INFORMATION
  Report Type: Spontaneous
  Country: CN (occurrence: CN)
  Receive Date: 20140630
  Receipt Date: 20140630
  Transmission Date: 20141212
  Serious: Yes (Other)
  Sender: FDA-Public Use
  Company Number: CN-ASTRAZENECA-2014SE42523

PATIENT
  Sex: Male
  Weight: 64 kg

DRUGS (1)
  1. BETALOC ZOK [Suspect]
     Indication: TACHYCARDIA
     Route: 048
     Dates: start: 20130528, end: 20130528

REACTIONS (7)
  - Blood pressure immeasurable [Unknown]
  - Hypersensitivity [Recovered/Resolved]
  - Pallor [Unknown]
  - Cold sweat [Unknown]
  - Yawning [Unknown]
  - Eye disorder [Unknown]
  - Asthenia [Unknown]
